FAERS Safety Report 17076691 (Version 3)
Quarter: 2020Q2

REPORT INFORMATION
  Report Type: Report from Study
  Country: US (occurrence: US)
  Receive Date: 20191126
  Receipt Date: 20200512
  Transmission Date: 20200713
  Serious: No
  Sender: FDA-Public Use
  Company Number: US-SA-2019SA327650

PATIENT
  Age: 59 Year
  Sex: Female

DRUGS (2)
  1. DUPILUMAB [Suspect]
     Active Substance: DUPILUMAB
     Dosage: 300 MG, QOW
     Route: 058
     Dates: start: 20190926
  2. DUPILUMAB [Suspect]
     Active Substance: DUPILUMAB
     Indication: DERMATITIS ATOPIC
     Dosage: 600 MG, 1X
     Route: 058
     Dates: start: 2019

REACTIONS (9)
  - Therapeutic product effect delayed [Unknown]
  - Ocular hyperaemia [Recovering/Resolving]
  - Erythema of eyelid [Recovering/Resolving]
  - Asthma [Not Recovered/Not Resolved]
  - Lacrimation increased [Recovering/Resolving]
  - Eye pruritus [Recovering/Resolving]
  - Swelling of eyelid [Recovering/Resolving]
  - Conjunctivitis [Recovering/Resolving]
  - Chapped lips [Unknown]

NARRATIVE: CASE EVENT DATE: 2019
